FAERS Safety Report 4981043-6 (Version None)
Quarter: 2006Q2

REPORT INFORMATION
  Report Type: 
  Country: None (occurrence: None)
  Receive Date: 20060418
  Receipt Date: 20060412
  Transmission Date: 20061013
  Serious: No
  Sender: FDA-Public Use
  Company Number: 0604-231

PATIENT
  Sex: Female

DRUGS (1)
  1. DUONEB [Suspect]
     Indication: PNEUMONIA
     Dosage: QID - PO/SINCE 4/5/2006
     Route: 048

REACTIONS (5)
  - ANXIETY [None]
  - GINGIVAL PAIN [None]
  - HEADACHE [None]
  - NERVOUSNESS [None]
  - TREMOR [None]
